FAERS Safety Report 4458961-0 (Version None)
Quarter: 2004Q3

REPORT INFORMATION
  Report Type: 
  Country: None (occurrence: None)
  Receive Date: 20040923
  Receipt Date: 20040923
  Transmission Date: 20050211
  Serious: Yes (Disabling)
  Sender: FDA-Public Use
  Company Number: None

PATIENT
  Age: 59 Year
  Sex: Male
  Weight: 95.2554 kg

DRUGS (1)
  1. LIPITOR [Suspect]
     Indication: HYPERLIPIDAEMIA
     Dosage: 10-20 MG / QD
     Dates: start: 19980201, end: 20040101

REACTIONS (3)
  - COGNITIVE DISORDER [None]
  - GLOBAL AMNESIA [None]
  - MEMORY IMPAIRMENT [None]
